FAERS Safety Report 8715343 (Version 2)
Quarter: 2012Q4

REPORT INFORMATION
  Report Type: 
  Country: US (occurrence: US)
  Receive Date: 20120809
  Receipt Date: 20120912
  Transmission Date: 20130627
  Serious: Yes (Hospitalization)
  Sender: FDA-Public Use
  Company Number: US-GLAXOSMITHKLINE-A0988695A

PATIENT
  Age: 69 Year
  Sex: Female

DRUGS (7)
  1. FLOLAN [Suspect]
     Indication: PRODUCT USED FOR UNKNOWN INDICATION
     Dosage: 11NGKM Continuous
     Route: 042
     Dates: start: 20120510
  2. SPIRIVA [Concomitant]
  3. ADVAIR [Concomitant]
  4. ALBUTEROL [Concomitant]
  5. DIGOXIN [Concomitant]
  6. FUROSEMIDE [Concomitant]
  7. OXYGEN [Concomitant]
     Route: 045

REACTIONS (3)
  - Oedema peripheral [Unknown]
  - Staphylococcal infection [Unknown]
  - Infusion site infection [Unknown]
